FAERS Safety Report 11485651 (Version 1)
Quarter: 2015Q3

REPORT INFORMATION
  Report Type: Spontaneous
  Country: US (occurrence: None)
  Receive Date: 20150909
  Receipt Date: 20150909
  Transmission Date: 20151125
  Serious: Yes (Other)
  Sender: FDA-Public Use
  Company Number: None

PATIENT
  Age: 56 Year
  Sex: Female
  Weight: 68.04 kg

DRUGS (1)
  1. FML [Suspect]
     Active Substance: FLUOROMETHOLONE
     Route: 031
     Dates: start: 20140101, end: 20150905

REACTIONS (5)
  - Eye swelling [None]
  - Vision blurred [None]
  - Infection [None]
  - Eye pain [None]
  - Photophobia [None]
